FAERS Safety Report 9361525 (Version 1)
Quarter: 2013Q2

REPORT INFORMATION
  Report Type: Spontaneous
  Country: TW (occurrence: TW)
  Receive Date: 20130621
  Receipt Date: 20130621
  Transmission Date: 20140414
  Serious: Yes (Hospitalization)
  Sender: FDA-Public Use
  Company Number: TW-ABBOTT-13P-153-1104278-00

PATIENT
  Sex: Male
  Weight: 95 kg

DRUGS (5)
  1. HUMIRA [Suspect]
     Indication: ANKYLOSING SPONDYLITIS
     Route: 058
     Dates: start: 20110408, end: 20130508
  2. DICLOXACILLIN [Suspect]
     Indication: JOINT SWELLING
     Route: 048
  3. DICLOXACILLIN [Suspect]
     Indication: JOINT WARMTH
  4. METISONE [Concomitant]
     Indication: PRODUCT USED FOR UNKNOWN INDICATION
     Route: 048
  5. SALAZOPYRIN [Concomitant]
     Indication: PRODUCT USED FOR UNKNOWN INDICATION
     Route: 048

REACTIONS (9)
  - Atrioventricular block complete [Unknown]
  - Syncope [Unknown]
  - Knee arthroplasty [Unknown]
  - Staphylococcal infection [Not Recovered/Not Resolved]
  - Hypoaesthesia [Unknown]
  - Back pain [Unknown]
  - Arthropathy [Unknown]
  - Drug ineffective [Unknown]
  - Back pain [Unknown]
